FAERS Safety Report 5524933-8 (Version None)
Quarter: 2007Q4

REPORT INFORMATION
  Report Type: 
  Country: None (occurrence: None)
  Receive Date: 20071119
  Receipt Date: 20071031
  Transmission Date: 20080405
  Serious: Yes (Other)
  Sender: FDA-Public Use
  Company Number: 8027917

PATIENT
  Age: 10 Year
  Sex: Male

DRUGS (2)
  1. EQUASYM [Suspect]
     Dosage: 30 MG /D
     Dates: start: 20070801
  2. RITALIN [Concomitant]

REACTIONS (5)
  - ELECTROCARDIOGRAM QRS COMPLEX PROLONGED [None]
  - ELECTROCARDIOGRAM ST SEGMENT ELEVATION [None]
  - HAEMOGLOBIN INCREASED [None]
  - MEAN CELL VOLUME INCREASED [None]
  - SINUS ARRHYTHMIA [None]
